FAERS Safety Report 6758944-1 (Version None)
Quarter: 2010Q2

REPORT INFORMATION
  Report Type: 
  Country: None (occurrence: None)
  Receive Date: 20100607
  Receipt Date: 20100505
  Transmission Date: 20101027
  Serious: No
  Sender: FDA-Public Use
  Company Number: US-BAYER-201015254BCC

PATIENT
  Sex: Male

DRUGS (2)
  1. ALEVE (CAPLET) [Suspect]
     Indication: OSTEITIS
     Dosage: TOTAL DAILY DOSE: 3520 MG  UNIT DOSE: 220 MG
     Route: 048
  2. GENERIC STORE BRAND ALEVE [Suspect]
     Indication: OSTEITIS
     Route: 065

REACTIONS (2)
  - ABDOMINAL PAIN UPPER [None]
  - GASTROOESOPHAGEAL REFLUX DISEASE [None]
